FAERS Safety Report 24863923 (Version 1)
Quarter: 2025Q1

REPORT INFORMATION
  Report Type: Spontaneous
  Country: CN (occurrence: CN)
  Receive Date: 20250120
  Receipt Date: 20250120
  Transmission Date: 20250409
  Serious: Yes (Hospitalization, Other)
  Sender: ALEXION PHARMACEUTICALS
  Company Number: CN-ASTRAZENECA-202501CHN013858CN

PATIENT

DRUGS (1)
  1. DAPAGLIFLOZIN [Suspect]
     Active Substance: DAPAGLIFLOZIN
     Indication: Cardiac failure
     Dosage: 10 MILLIGRAM, QD

REACTIONS (7)
  - Urinary tract candidiasis [Unknown]
  - Tinea cruris [Unknown]
  - Micturition urgency [Unknown]
  - Urinary incontinence [Unknown]
  - Pustule [Unknown]
  - Candida infection [Unknown]
  - Moisture-associated skin damage [Unknown]
